FAERS Safety Report 8539677-8 (Version None)
Quarter: 2012Q3

REPORT INFORMATION
  Report Type: 
  Country: None (occurrence: None)
  Receive Date: 20120726
  Receipt Date: 20110720
  Transmission Date: 20120928
  Serious: No
  Sender: FDA-Public Use
  Company Number: US-ASTRAZENECA-2008UW11359

PATIENT
  Age: 12186 Day
  Sex: Female

DRUGS (18)
  1. ZOLOFT [Concomitant]
     Dosage: 50-200 MG
     Dates: start: 20031001, end: 20031101
  2. ESTRATEST [Concomitant]
     Dates: start: 20040823
  3. PHENTERMINE [Concomitant]
     Indication: WEIGHT CONTROL
     Dates: start: 20030301, end: 20030501
  4. WELLBUTRIN [Concomitant]
     Dosage: 100 MG
     Dates: start: 20070301
  5. ASPIRIN [Concomitant]
     Dates: start: 20041206
  6. LEXAPRO [Concomitant]
     Dates: start: 20041206
  7. PAMELOR [Concomitant]
     Dates: start: 20041206
  8. VALIUM [Concomitant]
     Dates: start: 20041206
  9. CYMBALTA [Concomitant]
     Dates: start: 20060201
  10. CARISOPRODOL [Concomitant]
     Dosage: 350 MG
     Dates: start: 20040805
  11. PROZAC [Concomitant]
     Dosage: 20 MG AND 40 MG
     Dates: start: 20050101
  12. ESTRATEST [Concomitant]
     Dates: start: 20041206
  13. MIDRIN [Concomitant]
     Dosage: 1-2 FOUR TIMES DAILY NO MORE THEN 8 IN 24
     Dates: start: 20041206
  14. WELLBUTRIN [Concomitant]
     Dosage: 100-150 MG
     Dates: start: 20041201
  15. REMERON [Concomitant]
     Dates: start: 20060101
  16. HYDROCOD/APAP [Concomitant]
     Dosage: 7.5/50
     Dates: start: 20040805
  17. SEROQUEL [Suspect]
     Indication: DEPRESSION
     Dosage: 25 MG AND 50 MG
     Route: 048
     Dates: start: 20040519, end: 20060314
  18. EFFEXOR [Concomitant]
     Dates: start: 20041206

REACTIONS (5)
  - DIABETES MELLITUS INADEQUATE CONTROL [None]
  - DIABETES MELLITUS [None]
  - KIDNEY INFECTION [None]
  - HYPERSENSITIVITY [None]
  - SOMNOLENCE [None]
